FAERS Safety Report 8603489-7 (Version None)
Quarter: 2012Q3

REPORT INFORMATION
  Report Type: 
  Country: None (occurrence: None)
  Receive Date: 20120817
  Receipt Date: 20120807
  Transmission Date: 20120928
  Serious: Yes (Other)
  Sender: FDA-Public Use
  Company Number: US-ELI_LILLY_AND_COMPANY-US201208002021

PATIENT
  Sex: Male
  Weight: 90.249 kg

DRUGS (2)
  1. ACTOPLUS MET [Concomitant]
     Indication: TYPE 2 DIABETES MELLITUS
     Dosage: UNK
     Route: 048
  2. BYDUREON [Suspect]
     Indication: TYPE 2 DIABETES MELLITUS
     Dosage: 2 MG, WEEKLY (1/W)
     Route: 058

REACTIONS (8)
  - PROCTALGIA [None]
  - HAEMORRHOIDS [None]
  - WEIGHT DECREASED [None]
  - FAECES DISCOLOURED [None]
  - CONSTIPATION [None]
  - ASTHENIA [None]
  - ANAEMIA [None]
  - HAEMATOCHEZIA [None]
